FAERS Safety Report 7739276-1 (Version None)
Quarter: 2011Q3

REPORT INFORMATION
  Report Type: 
  Country: None (occurrence: None)
  Receive Date: 20110909
  Receipt Date: 20110830
  Transmission Date: 20111222
  Serious: Yes (Other)
  Sender: FDA-Public Use
  Company Number: US-JNJFOC-20110600369

PATIENT
  Sex: Male
  Weight: 61.24 kg

DRUGS (6)
  1. SYNTHROID [Concomitant]
     Indication: HYPOTHYROIDISM
     Route: 048
     Dates: start: 20100101
  2. VALIUM [Concomitant]
     Indication: SLEEP DISORDER
     Route: 048
     Dates: start: 20070101
  3. VALIUM [Concomitant]
     Indication: ANXIETY
     Route: 048
     Dates: start: 20070101
  4. HYDROCODONE BITARTRATE [Concomitant]
     Indication: BACK PAIN
     Dosage: 5/500 MG
     Route: 048
     Dates: start: 20070101
  5. LEVAQUIN [Suspect]
     Indication: PNEUMONIA
     Route: 048
     Dates: start: 20110527, end: 20110530
  6. HYDROCODONE BITARTRATE [Concomitant]
     Indication: MUSCULOSKELETAL CHEST PAIN
     Dosage: 5/500 MG
     Route: 048
     Dates: start: 20070101

REACTIONS (5)
  - ELECTROCARDIOGRAM ABNORMAL [None]
  - DIARRHOEA [None]
  - FATIGUE [None]
  - DYSPNOEA [None]
  - ABDOMINAL PAIN UPPER [None]
